FAERS Safety Report 4356209-9 (Version None)
Quarter: 2004Q2

REPORT INFORMATION
  Report Type: 
  Country: None (occurrence: None)
  Receive Date: 20040511
  Receipt Date: 20040405
  Transmission Date: 20050107
  Serious: Yes (Other)
  Sender: FDA-Public Use
  Company Number: ATO-04-0320

PATIENT
  Sex: Female

DRUGS (1)
  1. TRISENOX [Suspect]
     Indication: METASTATIC NEOPLASM
     Dosage: IVI
     Dates: start: 20040101, end: 20040101

REACTIONS (1)
  - CONVULSION [None]
